FAERS Safety Report 4414918-7 (Version None)
Quarter: 2004Q3

REPORT INFORMATION
  Report Type: 
  Country: None (occurrence: None)
  Receive Date: 20040803
  Receipt Date: 20040803
  Transmission Date: 20050211
  Serious: Yes (Death)
  Sender: FDA-Public Use
  Company Number: None

PATIENT
  Age: 57 Year
  Sex: Male
  Weight: 95 kg

DRUGS (4)
  1. THYMOGLOBULIN [Suspect]
     Indication: IMMUNOSUPPRESSION
     Dosage: 150MG ONCE INTRAVENOUS
     Route: 042
     Dates: start: 20040721, end: 20040721
  2. THYMOGLOBULIN [Suspect]
  3. METHYLPREDNISOLONE [Concomitant]
  4. MYCOPHENTOLATE [Concomitant]

REACTIONS (3)
  - CARDIAC ARREST [None]
  - COMPLICATIONS OF TRANSPLANT SURGERY [None]
  - PULMONARY OEDEMA [None]
